FAERS Safety Report 8521218-2 (Version None)
Quarter: 2012Q3

REPORT INFORMATION
  Report Type: 
  Country: None (occurrence: None)
  Receive Date: 20120719
  Receipt Date: 20120706
  Transmission Date: 20120928
  Serious: Yes (Other)
  Sender: FDA-Public Use
  Company Number: JP-EISAI INC-E2090-02191-SPO-JP

PATIENT
  Sex: Male

DRUGS (2)
  1. ZONISAMIDE [Suspect]
     Indication: CONVULSION
     Route: 048
     Dates: start: 20110308, end: 20110330
  2. LEXIN [Concomitant]
     Indication: CONVULSION
     Route: 048
     Dates: end: 20110330

REACTIONS (1)
  - STEVENS-JOHNSON SYNDROME [None]
